FAERS Safety Report 5931154-3 (Version None)
Quarter: 2008Q4

REPORT INFORMATION
  Report Type: 
  Country: None (occurrence: None)
  Receive Date: 20081027
  Receipt Date: 20081017
  Transmission Date: 20090506
  Serious: Yes (Other)
  Sender: FDA-Public Use
  Company Number: PHEH2008US09409

PATIENT
  Age: 8 Year
  Sex: Male

DRUGS (1)
  1. FOCALIN XR [Suspect]
     Dosage: UNK
     Dates: start: 20080701, end: 20080701

REACTIONS (2)
  - AGITATION [None]
  - EMOTIONAL DISORDER [None]
